FAERS Safety Report 5467199-X (Version None)
Quarter: 2007Q3

REPORT INFORMATION
  Report Type: 
  Country: None (occurrence: None)
  Receive Date: 20070925
  Receipt Date: 20070913
  Transmission Date: 20080115
  Serious: Yes (Hospitalization)
  Sender: FDA-Public Use
  Company Number: US-ROCHE-517637

PATIENT
  Age: 22 Year
  Sex: Male

DRUGS (2)
  1. PEGASYS [Suspect]
     Route: 065
     Dates: end: 20060901
  2. RIBAVIRIN [Suspect]
     Route: 065
     Dates: end: 20060901

REACTIONS (4)
  - CARDIAC VALVE VEGETATION [None]
  - CEREBRAL ARTERY EMBOLISM [None]
  - CEREBROVASCULAR ACCIDENT [None]
  - FLUID RETENTION [None]
